FAERS Safety Report 15584334 (Version 1)
Quarter: 2018Q4

REPORT INFORMATION
  Report Type: Spontaneous
  Country: US (occurrence: US)
  Receive Date: 20181101
  Receipt Date: 20181101
  Transmission Date: 20190205
  Serious: No
  Sender: FDA-Public Use
  Company Number: None

PATIENT
  Age: 48 Year
  Sex: Male

DRUGS (1)
  1. MAVYRET [Suspect]
     Active Substance: GLECAPREVIR\PIBRENTASVIR
     Route: 048
     Dates: start: 201810

REACTIONS (5)
  - Gastric disorder [None]
  - Swelling [None]
  - Tinnitus [None]
  - Abdominal distension [None]
  - Oedema peripheral [None]

NARRATIVE: CASE EVENT DATE: 20181018
